FAERS Safety Report 4353816-4 (Version None)
Quarter: 2004Q2

REPORT INFORMATION
  Report Type: 
  Country: None (occurrence: None)
  Receive Date: 20040430
  Receipt Date: 20040422
  Transmission Date: 20050107
  Serious: Yes (Other)
  Sender: FDA-Public Use
  Company Number: 2004027753

PATIENT
  Age: 83 Year
  Sex: Male

DRUGS (3)
  1. SULPERAZON (CEFOPERAZONE, SULBACTAM) [Suspect]
     Indication: ILL-DEFINED DISORDER
     Dosage: INTRAVENOUS
     Route: 042
  2. URALYT (ARNICA EXTRACT, CONVALLARIA GLYCOSIDES, ECHINACEA ANGUSTIFOLIA [Concomitant]
  3. FAMOTIDINE [Concomitant]

REACTIONS (3)
  - ANAPHYLACTIC SHOCK [None]
  - RESPIRATORY ARREST [None]
  - RESPIRATORY FAILURE [None]
